FAERS Safety Report 23890312 (Version 3)
Quarter: 2024Q3

REPORT INFORMATION
  Report Type: Report from Study
  Country: CA (occurrence: CA)
  Receive Date: 20240523
  Receipt Date: 20240708
  Transmission Date: 20241017
  Serious: No
  Sender: MYLAN
  Company Number: CA-MYLANLABS-2024M1044811

PATIENT
  Age: 77 Year
  Sex: Female
  Weight: 47.62 kg

DRUGS (1)
  1. EPIPEN [Suspect]
     Active Substance: EPINEPHRINE
     Indication: Allergy to arthropod sting
     Dosage: UNK
     Route: 065

REACTIONS (2)
  - Drug dose omission by device [Recovered/Resolved]
  - Device failure [Recovered/Resolved]

NARRATIVE: CASE EVENT DATE: 20240509
